FAERS Safety Report 5929205-5 (Version None)
Quarter: 2008Q4

REPORT INFORMATION
  Report Type: 
  Country: None (occurrence: None)
  Receive Date: 20081024
  Receipt Date: 20081017
  Transmission Date: 20090506
  Serious: Yes (Other)
  Sender: FDA-Public Use
  Company Number: US-BAYER-200711507BWH

PATIENT
  Age: 81 Year
  Sex: Male
  Weight: 76 kg

DRUGS (10)
  1. NEXAVAR [Suspect]
     Indication: RENAL CELL CARCINOMA
     Dosage: TOTAL DAILY DOSE: 800 MG  UNIT DOSE: 200 MG
     Route: 048
     Dates: start: 20070101, end: 20070601
  2. NEXAVAR [Suspect]
     Dosage: TOTAL DAILY DOSE: 400 MG  UNIT DOSE: 200 MG
     Route: 048
     Dates: start: 20070101, end: 20080101
  3. NEXAVAR [Suspect]
     Dosage: TOTAL DAILY DOSE: 800 MG  UNIT DOSE: 200 MG
     Route: 048
     Dates: start: 20080101, end: 20080801
  4. NEXAVAR [Suspect]
     Dosage: TOTAL DAILY DOSE: 400 MG  UNIT DOSE: 200 MG
     Route: 048
     Dates: start: 20080801
  5. AVODART [Concomitant]
     Dosage: TOTAL DAILY DOSE: 0.5 MG
  6. LOTREL [Concomitant]
  7. TERAZOSIN HCL [Concomitant]
     Dosage: TOTAL DAILY DOSE: 10 MG
  8. NEUTRO PHOS [Concomitant]
  9. CALCIUM [Concomitant]
     Dosage: TOTAL DAILY DOSE: 2400 MG
  10. PRILOSEC [Concomitant]

REACTIONS (5)
  - ADVERSE DRUG REACTION [None]
  - DYSPHONIA [None]
  - METASTASES TO BONE [None]
  - TENDON PAIN [None]
  - UNEVALUABLE EVENT [None]
